FAERS Safety Report 13185169 (Version 1)
Quarter: 2017Q1

REPORT INFORMATION
  Report Type: Spontaneous
  Country: BR (occurrence: BR)
  Receive Date: 20170203
  Receipt Date: 20170203
  Transmission Date: 20170428
  Serious: Yes (Death)
  Sender: FDA-Public Use
  Company Number: BR-BAYER-2017-021935

PATIENT
  Sex: Male

DRUGS (2)
  1. NEXAVAR [Suspect]
     Active Substance: SORAFENIB
     Indication: HEPATIC CANCER
     Dosage: UNK
     Route: 048
     Dates: start: 201607, end: 201609
  2. XARELTO [Concomitant]
     Active Substance: RIVAROXABAN
     Indication: THROMBOSIS
     Dosage: UNK
     Dates: start: 2016

REACTIONS (3)
  - Asthenia [None]
  - Hepatic cancer [Fatal]
  - Epistaxis [None]
